FAERS Safety Report 15702847 (Version 1)
Quarter: 2018Q4

REPORT INFORMATION
  Report Type: Spontaneous
  Country: GB (occurrence: GB)
  Receive Date: 20181210
  Receipt Date: 20181210
  Transmission Date: 20190205
  Serious: Yes (Other)
  Sender: FDA-Public Use
  Company Number: GB-TEVA-2018-GB-984015

PATIENT
  Age: 59 Year
  Sex: Female

DRUGS (2)
  1. AMDIPHARM UK CARBIMAZOLE [Concomitant]
     Route: 065
  2. TEVA UK ESOMEPRAZOLE GASTRO-RESISTANT [Suspect]
     Active Substance: ESOMEPRAZOLE
     Route: 048
     Dates: start: 20181107, end: 20181107

REACTIONS (9)
  - Breath odour [Unknown]
  - Dizziness [Not Recovered/Not Resolved]
  - Dysgeusia [Unknown]
  - Malaise [Not Recovered/Not Resolved]
  - Abdominal pain upper [Not Recovered/Not Resolved]
  - Nausea [Unknown]
  - Feeling abnormal [Not Recovered/Not Resolved]
  - Diarrhoea [Not Recovered/Not Resolved]
  - Chills [Not Recovered/Not Resolved]

NARRATIVE: CASE EVENT DATE: 20181107
